FAERS Safety Report 21749280 (Version 1)
Quarter: 2022Q4

REPORT INFORMATION
  Report Type: Spontaneous
  Country: US (occurrence: None)
  Receive Date: 20221217
  Receipt Date: 20221217
  Transmission Date: 20230113
  Serious: Yes (Hospitalization)
  Sender: FDA-Public Use
  Company Number: None

PATIENT
  Age: 79 Year
  Sex: Female
  Weight: 80.4 kg

DRUGS (1)
  1. PEMBROLIZUMAB [Suspect]
     Active Substance: PEMBROLIZUMAB
     Dates: end: 20221123

REACTIONS (6)
  - Fall [None]
  - Pain in extremity [None]
  - SARS-CoV-2 test positive [None]
  - Bacteriuria [None]
  - Urinary tract infection [None]
  - Confusional state [None]

NARRATIVE: CASE EVENT DATE: 20221210
